FAERS Safety Report 6717709-7 (Version None)
Quarter: 2010Q2

REPORT INFORMATION
  Report Type: 
  Country: None (occurrence: None)
  Receive Date: 20100510
  Receipt Date: 20100302
  Transmission Date: 20101027
  Serious: Yes (Death, Hospitalization)
  Sender: FDA-Public Use
  Company Number: JP-BAYER-200911651BYL

PATIENT
  Age: 58 Year
  Sex: Male
  Weight: 52 kg

DRUGS (1)
  1. NEXAVAR [Suspect]
     Indication: RENAL CELL CARCINOMA
     Dosage: TOTAL DAILY DOSE: 800 MG  UNIT DOSE: 200 MG
     Route: 048
     Dates: start: 20090223, end: 20090511

REACTIONS (4)
  - BLOOD CREATININE INCREASED [None]
  - LIPASE INCREASED [None]
  - LYMPHADENOPATHY [None]
  - RESPIRATORY DISORDER [None]
